FAERS Safety Report 4834438-5 (Version None)
Quarter: 2005Q4

REPORT INFORMATION
  Report Type: 
  Country: None (occurrence: None)
  Receive Date: 20051122
  Receipt Date: 20041005
  Transmission Date: 20060501
  Serious: No
  Sender: FDA-Public Use
  Company Number: US-BRISTOL-MYERS SQUIBB COMPANY-12725123

PATIENT
  Age: 52 Year
  Sex: Female
  Weight: 56 kg

DRUGS (4)
  1. PRAVACHOL [Suspect]
     Indication: BLOOD CHOLESTEROL INCREASED
     Dosage: ADD'L LOT # AND EXP DATE: 3G67688, JUL-2006
     Route: 048
     Dates: start: 20010815, end: 20030929
  2. METOPROLOL [Concomitant]
  3. VITAMINS [Concomitant]
  4. KEFLEX [Concomitant]

REACTIONS (4)
  - CHEST PAIN [None]
  - HEART RATE INCREASED [None]
  - MYALGIA [None]
  - PALPITATIONS [None]
